FAERS Safety Report 9801741 (Version 3)
Quarter: 2014Q1

REPORT INFORMATION
  Report Type: Spontaneous
  Country: JP (occurrence: JP)
  Receive Date: 20140107
  Receipt Date: 20140116
  Transmission Date: 20141002
  Serious: Yes (Hospitalization)
  Sender: FDA-Public Use
  Company Number: JP-B.I. PHARMACEUTICALS,INC./RIDGEFIELD-2014-BI-00584NB

PATIENT
  Age: 81 Year
  Sex: Female
  Weight: 46 kg

DRUGS (8)
  1. PRAZAXA [Suspect]
     Indication: ATRIAL FIBRILLATION
     Dosage: 220 MG
     Route: 048
     Dates: start: 201306
  2. BI-SIFROL [Suspect]
     Indication: RESTLESS LEGS SYNDROME
     Dosage: 0.125 MG
     Route: 048
     Dates: start: 2007
  3. AMLODIPINE [Suspect]
     Indication: HYPERTENSION
     Dosage: 5 MG
     Route: 048
     Dates: start: 2005
  4. BAYASPIRIN [Suspect]
     Dosage: 100 MG
     Route: 048
     Dates: start: 2005
  5. ARTIST [Suspect]
     Indication: HYPERTENSION
     Dosage: 5 MG
     Route: 048
     Dates: start: 2005
  6. PREDNISOLONE [Suspect]
     Indication: RHEUMATIC DISORDER
     Dosage: 5 MG
     Route: 048
     Dates: start: 201303
  7. TAKEPRON [Suspect]
     Dosage: 15 MG
     Route: 048
     Dates: start: 201303
  8. CALONAL [Suspect]
     Dosage: 1000 MG
     Route: 048
     Dates: start: 201311

REACTIONS (1)
  - Cardiac failure [Not Recovered/Not Resolved]
